FAERS Safety Report 15943407 (Version 1)
Quarter: 2019Q1

REPORT INFORMATION
  Report Type: Spontaneous
  Country: US (occurrence: US)
  Receive Date: 20190119
  Receipt Date: 20190119
  Transmission Date: 20190417
  Serious: Yes (Other)
  Sender: FDA-Public Use
  Company Number: None

PATIENT
  Age: 28 Year
  Sex: Female

DRUGS (3)
  1. TYLENOL [Concomitant]
     Active Substance: ACETAMINOPHEN
  2. ASPIRIN. [Concomitant]
     Active Substance: ASPIRIN
  3. NAPROXEN 500MG [Suspect]
     Active Substance: NAPROXEN
     Indication: DYSMENORRHOEA
     Dosage: ?          QUANTITY:500 TABLET(S);?
     Route: 048
     Dates: start: 20190118

REACTIONS (4)
  - Dizziness [None]
  - Insomnia [None]
  - Nausea [None]
  - Blood glucose fluctuation [None]

NARRATIVE: CASE EVENT DATE: 20190118
